FAERS Safety Report 4462144-8 (Version None)
Quarter: 2004Q3

REPORT INFORMATION
  Report Type: 
  Country: None (occurrence: None)
  Receive Date: 20040928
  Receipt Date: 20040920
  Transmission Date: 20050211
  Serious: No
  Sender: FDA-Public Use
  Company Number: 2004UW19597

PATIENT
  Age: 57 Year
  Sex: Female

DRUGS (9)
  1. CRESTOR [Suspect]
     Dosage: 10 MG QD PO
     Route: 048
  2. APO-BROMAZEPAM [Concomitant]
  3. CALCIUM [Concomitant]
  4. COVERSYL [Concomitant]
  5. ENTROPHEN [Concomitant]
  6. FLAXSEED [Concomitant]
  7. HEMP SEED [Concomitant]
  8. LOSEC [Concomitant]
  9. VITAMIN C [Concomitant]

REACTIONS (4)
  - CHROMATURIA [None]
  - DYSURIA [None]
  - MYALGIA [None]
  - RENAL PAIN [None]
